FAERS Safety Report 9105753 (Version 1)
Quarter: 2013Q1

REPORT INFORMATION
  Report Type: Spontaneous
  Country: US (occurrence: US)
  Receive Date: 20130220
  Receipt Date: 20130220
  Transmission Date: 20140127
  Serious: No
  Sender: FDA-Public Use
  Company Number: PHEH2013US002812

PATIENT
  Age: 61 Year
  Sex: Male

DRUGS (5)
  1. TASIGNA [Suspect]
     Dosage: 300 MG, BID
     Route: 048
  2. BISOPROLOL W/HYDROCHLOROTHIAZIDE [Concomitant]
     Indication: HYPERTENSION
     Dosage: 1 DF, DAILY
  3. CRESTOR [Concomitant]
     Dosage: 5 MG, DAILY
  4. OMEPRAZOLE [Concomitant]
     Dosage: 20 MG, BID
  5. LISINOPRIL [Concomitant]
     Indication: HYPERTENSION

REACTIONS (4)
  - Facial pain [Unknown]
  - Swelling face [Recovered/Resolved]
  - Rash [Recovered/Resolved]
  - Erythema [Unknown]
